FAERS Safety Report 6583817-7 (Version None)
Quarter: 2010Q1

REPORT INFORMATION
  Report Type: 
  Country: None (occurrence: None)
  Receive Date: 20100213
  Receipt Date: 20100213
  Transmission Date: 20100710
  Serious: Yes (Disabling, Other)
  Sender: FDA-Public Use
  Company Number: None

PATIENT
  Age: 34 Year
  Sex: Female
  Weight: 156.491 kg

DRUGS (2)
  1. TOPIRAMATE [Suspect]
     Indication: HEADACHE
     Dosage: 50 MG TWICE DAILY PO
     Route: 048
     Dates: start: 20090630, end: 20090801
  2. TOPIRAMATE [Suspect]
     Indication: NEURALGIA
     Dosage: 50 MG TWICE DAILY PO
     Route: 048
     Dates: start: 20090630, end: 20090801

REACTIONS (6)
  - DIZZINESS [None]
  - ERYTHEMA [None]
  - NAUSEA [None]
  - PRURITUS [None]
  - VISION BLURRED [None]
  - VISUAL IMPAIRMENT [None]
